FAERS Safety Report 9728005 (Version 1)
Quarter: 2013Q4

REPORT INFORMATION
  Report Type: Spontaneous
  Country: JP (occurrence: None)
  Receive Date: 20131127
  Receipt Date: 20131127
  Transmission Date: 20140711
  Serious: Yes (Other)
  Sender: FDA-Public Use
  Company Number: DSJ-2013-25458

PATIENT
  Age: 72 Year
  Sex: 0

DRUGS (5)
  1. OLMETEC (OLMESARTAN MEDOXOMIL) (TABLET) (OLMESARTAN MEDOXOMIL) [Suspect]
     Indication: HYPERTENSION
     Route: 048
  2. NESINA (ALOGLIPTIN BENZOATE) TABLETS [Suspect]
  3. ALOSITOL (ALLOPURINOL) (ALLOPURINOL) [Concomitant]
  4. WARARIN (WARFARIN) (WARFARIN) [Concomitant]
  5. LIPITOR (ATORVASTATIN CALCIUM) (ATORVASTATIN CALCIUM) [Concomitant]

REACTIONS (1)
  - Stevens-Johnson syndrome [None]
